FAERS Safety Report 6740283-6 (Version None)
Quarter: 2010Q2

REPORT INFORMATION
  Report Type: 
  Country: None (occurrence: None)
  Receive Date: 20100525
  Receipt Date: 20100520
  Transmission Date: 20101027
  Serious: Yes (Hospitalization, Disabling, Other)
  Sender: FDA-Public Use
  Company Number: US-MERCK-1005USA02749

PATIENT
  Age: 60 Year
  Sex: Female

DRUGS (13)
  1. DECADRON [Suspect]
     Route: 048
     Dates: start: 20100317
  2. ALLOPURINOL [Concomitant]
     Indication: MULTIPLE MYELOMA
     Route: 048
     Dates: start: 20100302, end: 20100329
  3. LIPITOR [Concomitant]
     Indication: HYPERLIPIDAEMIA
     Route: 065
  4. REVLIMID [Suspect]
     Indication: MULTIPLE MYELOMA
     Dosage: DAILY X 21 DAYS, OFF 7 DAYS
     Route: 048
     Dates: start: 20100314, end: 20100325
  5. SYNTHROID [Concomitant]
     Indication: HYPOTHYROIDISM
     Route: 065
  6. MS CONTIN [Concomitant]
     Route: 065
  7. COMPAZINE [Concomitant]
     Indication: VOMITING
     Route: 065
     Dates: start: 20100323, end: 20100329
  8. ZOMETA [Suspect]
     Route: 042
     Dates: start: 20100319
  9. COMPAZINE [Concomitant]
     Indication: NAUSEA
     Route: 065
     Dates: start: 20100323, end: 20100329
  10. ROXANOL [Concomitant]
     Route: 065
  11. REVLIMID [Suspect]
     Route: 048
  12. DYAZIDE [Suspect]
     Indication: HYPERTENSION
     Route: 048
     Dates: end: 20100328
  13. COREG CR [Concomitant]
     Indication: CORONARY ARTERY DISEASE
     Route: 065

REACTIONS (6)
  - DECREASED APPETITE [None]
  - DEHYDRATION [None]
  - FATIGUE [None]
  - NAUSEA [None]
  - RENAL FAILURE [None]
  - VOMITING [None]
